FAERS Safety Report 6166664-X (Version None)
Quarter: 2009Q2

REPORT INFORMATION
  Report Type: 
  Country: None (occurrence: None)
  Receive Date: 20090423
  Receipt Date: 20090423
  Transmission Date: 20091009
  Serious: Yes (Other)
  Sender: FDA-Public Use
  Company Number: None

PATIENT
  Age: 23 Year
  Sex: Female

DRUGS (5)
  1. GEODON [Suspect]
     Dosage: 20MG X1 IM
     Route: 030
     Dates: start: 20090409, end: 20090409
  2. CELEXA [Concomitant]
  3. DIVALPROIC SODIUM ER [Concomitant]
  4. VISTARIL [Concomitant]
  5. TRAZODONE HCL [Concomitant]

REACTIONS (1)
  - DYSTONIA [None]
